FAERS Safety Report 9687572 (Version 1)
Quarter: 2013Q4

REPORT INFORMATION
  Report Type: Report from Study
  Country: US (occurrence: US)
  Receive Date: 20131114
  Receipt Date: 20131114
  Transmission Date: 20140711
  Serious: Yes (Other)
  Sender: FDA-Public Use
  Company Number: US-JNJFOC-20131103327

PATIENT
  Age: 55 Year
  Sex: Female
  Weight: 65.77 kg

DRUGS (5)
  1. REMICADE [Suspect]
     Indication: RHEUMATOID ARTHRITIS
     Dosage: STARTED 2 OR 3 YEARS AGO
     Route: 042
  2. METHOTREXATE [Suspect]
     Indication: RHEUMATOID ARTHRITIS
     Route: 048
  3. PROTONIX [Concomitant]
     Route: 065
  4. LANTUS [Concomitant]
     Indication: DIABETES MELLITUS
     Dosage: 10 UNITS ^PEN^
     Route: 058
  5. NOVOLOG [Concomitant]
     Indication: DIABETES MELLITUS
     Dosage: 5 UNITS ^PEN^, BEFORE EACH MEAL
     Route: 058

REACTIONS (6)
  - Restless legs syndrome [Not Recovered/Not Resolved]
  - Bunion operation [Not Recovered/Not Resolved]
  - Osteoporosis [Not Recovered/Not Resolved]
  - Back pain [Unknown]
  - Polyp [Recovered/Resolved]
  - Fall [Recovered/Resolved]
